FAERS Safety Report 9709203 (Version 2)
Quarter: 2013Q4

REPORT INFORMATION
  Report Type: Spontaneous
  Country: US (occurrence: US)
  Receive Date: 20131125
  Receipt Date: 20131231
  Transmission Date: 20140711
  Serious: Yes (Other)
  Sender: FDA-Public Use
  Company Number: US-FRI-1000051595

PATIENT
  Age: 70 Year
  Sex: Female

DRUGS (7)
  1. VIIBRYD [Suspect]
     Indication: DEPRESSION
     Dosage: 10 MG
     Route: 048
  2. VIIBRYD [Suspect]
     Dosage: 20 MG
     Route: 048
  3. VIIBRYD [Suspect]
     Dosage: 30 MG
     Route: 048
  4. VIIBRYD [Suspect]
     Indication: DEPRESSION
     Dosage: 40 MG
     Route: 048
  5. VIIBRYD [Suspect]
     Dosage: 30 MG
     Route: 048
  6. VIIBRYD [Suspect]
     Dosage: 20 MG
     Route: 048
  7. VIIBRYD [Suspect]
     Indication: DEPRESSION
     Dosage: 10 MG
     Route: 048
     Dates: end: 201311

REACTIONS (5)
  - Suicidal ideation [Recovered/Resolved]
  - Aggression [Recovered/Resolved]
  - Anger [Recovered/Resolved]
  - Hallucination [Recovered/Resolved]
  - Irritability [Recovered/Resolved]
